FAERS Safety Report 4790559-7 (Version None)
Quarter: 2005Q4

REPORT INFORMATION
  Report Type: 
  Country: None (occurrence: None)
  Receive Date: 20051005
  Receipt Date: 20050919
  Transmission Date: 20060501
  Serious: Yes (Death, Hospitalization, Other)
  Sender: FDA-Public Use
  Company Number: US_0506118750

PATIENT
  Sex: Female

DRUGS (6)
  1. ZYPREXA [Suspect]
     Indication: BIPOLAR DISORDER
     Dosage: 10 MG
     Dates: start: 19970201
  2. LIPITOR [Concomitant]
  3. COZAAR [Concomitant]
  4. THIORIDAZINE [Concomitant]
  5. TRIHEXYPHENIDYL HCL [Concomitant]
  6. NORTRIPTYLINE HCL [Concomitant]

REACTIONS (8)
  - BLOOD CHOLESTEROL INCREASED [None]
  - BLOOD GLUCOSE INCREASED [None]
  - BLOOD TRIGLYCERIDES INCREASED [None]
  - DIABETES MELLITUS [None]
  - DYSPNOEA [None]
  - FATIGUE [None]
  - RECTAL HAEMORRHAGE [None]
  - URINARY TRACT INFECTION [None]
